FAERS Safety Report 11757805 (Version 1)
Quarter: 2015Q4

REPORT INFORMATION
  Report Type: Spontaneous
  Country: US (occurrence: US)
  Receive Date: 20151120
  Receipt Date: 20151120
  Transmission Date: 20160304
  Serious: Yes (Other)
  Sender: FDA-Public Use
  Company Number: US-CELGENE-USA-2015113531

PATIENT
  Sex: Female

DRUGS (3)
  1. THALOMID [Suspect]
     Active Substance: THALIDOMIDE
     Dosage: 50-150 MG
     Route: 048
     Dates: start: 200810
  2. THALOMID [Suspect]
     Active Substance: THALIDOMIDE
     Route: 048
     Dates: start: 20151019
  3. THALOMID [Suspect]
     Active Substance: THALIDOMIDE
     Indication: PLASMA CELL MYELOMA
     Route: 048
     Dates: start: 200809

REACTIONS (1)
  - Pain in jaw [Not Recovered/Not Resolved]
